FAERS Safety Report 8374066-0 (Version None)
Quarter: 2012Q2

REPORT INFORMATION
  Report Type: 
  Country: None (occurrence: None)
  Receive Date: 20120521
  Receipt Date: 20120514
  Transmission Date: 20120825
  Serious: Yes (Hospitalization)
  Sender: FDA-Public Use
  Company Number: US-TEVA-338306USA

PATIENT
  Age: 53 Year
  Sex: Female

DRUGS (2)
  1. CLINDAMYCIN HCL [Suspect]
     Indication: TOOTH ABSCESS
     Route: 048
  2. AZITHROMYCIN [Suspect]
     Indication: SINUSITIS
     Route: 065

REACTIONS (3)
  - CLOSTRIDIAL INFECTION [None]
  - BACTERAEMIA [None]
  - SYSTEMIC INFLAMMATORY RESPONSE SYNDROME [None]
